FAERS Safety Report 5249182-2 (Version None)
Quarter: 2007Q1

REPORT INFORMATION
  Report Type: 
  Country: None (occurrence: None)
  Receive Date: 20070223
  Receipt Date: 20070207
  Transmission Date: 20070707
  Serious: Yes (Hospitalization)
  Sender: FDA-Public Use
  Company Number: 2006VX001467

PATIENT
  Age: 48 Year
  Sex: Male
  Weight: 73 kg

DRUGS (4)
  1. INTERFERON ALFACON-1 (INTERFERON ALFACON-1) (9 MIU) [Suspect]
     Indication: HEPATITIS C
     Dosage: 9 UG; QD; SC
     Route: 058
     Dates: start: 20060608, end: 20060927
  2. REBETOL [Suspect]
     Dosage: 1000 MG; QD; PO
     Route: 048
     Dates: start: 20060831, end: 20060927
  3. MAO INHIBITORS [Concomitant]
  4. RAMIPRIL [Concomitant]

REACTIONS (11)
  - ANAEMIA [None]
  - APPENDICITIS [None]
  - DIABETES MELLITUS [None]
  - EPIDIDYMITIS [None]
  - HEPATIC CIRRHOSIS [None]
  - HEPATIC FIBROSIS [None]
  - IMPAIRED HEALING [None]
  - POST PROCEDURAL COMPLICATION [None]
  - SPINAL COLUMN STENOSIS [None]
  - THROMBOCYTOPENIA [None]
  - WOUND DEHISCENCE [None]
